FAERS Safety Report 6479659-3 (Version None)
Quarter: 2009Q4

REPORT INFORMATION
  Report Type: 
  Country: None (occurrence: None)
  Receive Date: 20091208
  Receipt Date: 20091204
  Transmission Date: 20100525
  Serious: Yes (Hospitalization, Other)
  Sender: FDA-Public Use
  Company Number: ES-ROXANE LABORATORIES, INC.-2009-RO-01217RO

PATIENT
  Age: 33 Year
  Sex: Female

DRUGS (3)
  1. CITALOPRAM HYDROBROMIDE [Suspect]
     Indication: DEPRESSION
     Dosage: 30 MG
  2. DIAZEPAM [Suspect]
     Indication: DEPRESSION
     Dosage: 30 MG
  3. LORAZEPAM [Suspect]
     Indication: DEPRESSION
     Dosage: 2 MG

REACTIONS (6)
  - DRUG ABUSE [None]
  - DRUG DEPENDENCE [None]
  - DRUG INEFFECTIVE [None]
  - OVERDOSE [None]
  - SUICIDAL IDEATION [None]
  - WITHDRAWAL SYNDROME [None]
